FAERS Safety Report 23698813 (Version 1)
Quarter: 2024Q2

REPORT INFORMATION
  Report Type: Spontaneous
  Country: US (occurrence: None)
  Receive Date: 20240402
  Receipt Date: 20240402
  Transmission Date: 20240716
  Serious: Yes (Death)
  Sender: FDA-Public Use
  Company Number: None

PATIENT
  Age: 60 Year
  Sex: Male
  Weight: 41.7 kg

DRUGS (5)
  1. FLUOROURACIL [Suspect]
     Active Substance: FLUOROURACIL
     Dates: end: 20240311
  2. IRINOTECAN [Suspect]
     Active Substance: IRINOTECAN
     Dates: end: 20240311
  3. LEUCOVORIN CALCIUM [Suspect]
     Active Substance: LEUCOVORIN CALCIUM
     Dates: end: 20240311
  4. NIVOLUMAB [Suspect]
     Active Substance: NIVOLUMAB
     Dates: end: 20240311
  5. ELOXATIN [Suspect]
     Active Substance: OXALIPLATIN
     Dates: end: 20240311

REACTIONS (7)
  - Asthenia [None]
  - Blood loss anaemia [None]
  - Gastric cancer [None]
  - Gastric perforation [None]
  - Tumour perforation [None]
  - Shock [None]
  - Treatment failure [None]

NARRATIVE: CASE EVENT DATE: 20240317
